FAERS Safety Report 4384540-X (Version None)
Quarter: 2004Q2

REPORT INFORMATION
  Report Type: 
  Country: None (occurrence: None)
  Receive Date: 20040607
  Receipt Date: 20030516
  Transmission Date: 20050107
  Serious: Yes (Other)
  Sender: FDA-Public Use
  Company Number: 338067

PATIENT

DRUGS (3)
  1. ACCUTANE [Suspect]
     Indication: SKIN LESION
     Dates: start: 20020320, end: 20020115
  2. BIRTH CONTROL PILL (ORAL CONTRACEPTIVE NOS) [Concomitant]
  3. CLARITIN-D [Concomitant]

REACTIONS (2)
  - ABORTION INDUCED [None]
  - NO ADVERSE DRUG EFFECT [None]
